FAERS Safety Report 9992263 (Version 2)
Quarter: 2014Q1

REPORT INFORMATION
  Report Type: Spontaneous
  Country: US (occurrence: US)
  Receive Date: 20140310
  Receipt Date: 20140310
  Transmission Date: 20141002
  Serious: Yes (Other)
  Sender: FDA-Public Use
  Company Number: US-ASTELLAS-2014US000426

PATIENT
  Age: 82 Year
  Sex: Male
  Weight: 93 kg

DRUGS (2)
  1. XTANDI [Suspect]
     Indication: PROSTATE CANCER METASTATIC
     Dosage: 160 MG, UID/QD
     Route: 048
     Dates: start: 201309, end: 201311
  2. XTANDI [Suspect]
     Dosage: 80 MG, UID/QD
     Route: 048
     Dates: start: 201311, end: 201401

REACTIONS (3)
  - Underdose [Unknown]
  - Dyspnoea [Recovering/Resolving]
  - Pneumonia [Recovering/Resolving]
